FAERS Safety Report 11726192 (Version 1)
Quarter: 2015Q4

REPORT INFORMATION
  Report Type: Spontaneous
  Country: US (occurrence: US)
  Receive Date: 20151110
  Receipt Date: 20151110
  Transmission Date: 20160304
  Serious: No
  Sender: FDA-Public Use
  Company Number: US-ELI_LILLY_AND_COMPANY-US201110000897

PATIENT
  Sex: Female

DRUGS (2)
  1. FORTEO [Suspect]
     Active Substance: TERIPARATIDE
     Dosage: 20 UG, QD
  2. FORTEO [Suspect]
     Active Substance: TERIPARATIDE
     Indication: OSTEOPOROSIS
     Dosage: 20 UG, QD
     Dates: start: 20110923

REACTIONS (12)
  - Drug dose omission [Unknown]
  - Back pain [Unknown]
  - Malaise [Unknown]
  - Nausea [Unknown]
  - Chest pain [Unknown]
  - Hyperhidrosis [Unknown]
  - Chronic obstructive pulmonary disease [Unknown]
  - Vomiting [Unknown]
  - Dyspnoea [Unknown]
  - Headache [Unknown]
  - Dysphonia [Unknown]
  - Anxiety [Unknown]
